FAERS Safety Report 8330354 (Version 9)
Quarter: 2012Q4

REPORT INFORMATION
  Report Type: Spontaneous
  Country: CA (occurrence: None)
  Receive Date: 20111228
  Receipt Date: 20120810
  Transmission Date: 20130627
  Serious: Yes (Hospitalization)
  Sender: FDA-Public Use
  Company Number: ACO_28512_2011

PATIENT
  Age: 62 Year
  Sex: Male

DRUGS (1)
  1. AMPYRA [Suspect]
     Indication: MULTIPLE SCLEROSIS
     Dosage: 10 MG, BID, ORAL
     Route: 048
     Dates: start: 20110622

REACTIONS (19)
  - Rib fracture [None]
  - Pneumothorax [None]
  - Fall [None]
  - Carpal tunnel syndrome [None]
  - Drug dose omission [None]
  - Agitation [None]
  - Urinary tract infection [None]
  - Diet refusal [None]
  - Weight decreased [None]
  - Confusional state [None]
  - Aggression [None]
  - Pneumothorax traumatic [None]
  - Subcutaneous emphysema [None]
  - Atelectasis [None]
  - Glucose urine present [None]
  - Blood urine present [None]
  - Neurogenic bladder [None]
  - Multiple sclerosis [None]
  - Subcutaneous emphysema [None]
